FAERS Safety Report 24926177 (Version 2)
Quarter: 2025Q1

REPORT INFORMATION
  Report Type: Spontaneous
  Country: US (occurrence: US)
  Receive Date: 20250205
  Receipt Date: 20250307
  Transmission Date: 20250408
  Serious: No
  Sender: ROCHE
  Company Number: US-ROCHE-10000194215

PATIENT
  Age: 69 Year
  Sex: Male

DRUGS (1)
  1. XOLAIR [Suspect]
     Active Substance: OMALIZUMAB
     Indication: Urticaria chronic
     Route: 058
     Dates: start: 20241022

REACTIONS (4)
  - Accidental exposure to product [Unknown]
  - Product preparation error [Unknown]
  - Wrong technique in product usage process [Unknown]
  - No adverse event [Unknown]

NARRATIVE: CASE EVENT DATE: 20250118
